FAERS Safety Report 11915142 (Version 1)
Quarter: 2016Q1

REPORT INFORMATION
  Report Type: Spontaneous
  Country: IT (occurrence: IT)
  Receive Date: 20160114
  Receipt Date: 20160114
  Transmission Date: 20160526
  Serious: Yes (Other)
  Sender: FDA-Public Use
  Company Number: IT-AMGEN-ITASP2016002967

PATIENT
  Age: 76 Year
  Sex: Female
  Weight: 64 kg

DRUGS (1)
  1. VECTIBIX [Suspect]
     Active Substance: PANITUMUMAB
     Indication: COLON CANCER METASTATIC
     Dosage: 380 MG, CYCLIC
     Route: 042
     Dates: start: 20151110, end: 20151110

REACTIONS (4)
  - Pruritus [Recovering/Resolving]
  - Activities of daily living impaired [Recovering/Resolving]
  - Folliculitis [Recovering/Resolving]
  - Insomnia [Recovering/Resolving]

NARRATIVE: CASE EVENT DATE: 20151110
